FAERS Safety Report 7543550-1 (Version None)
Quarter: 2011Q2

REPORT INFORMATION
  Report Type: 
  Country: None (occurrence: None)
  Receive Date: 20110613
  Receipt Date: 20020315
  Transmission Date: 20111010
  Serious: Yes (Hospitalization)
  Sender: FDA-Public Use
  Company Number: PHBS2002JP03811

PATIENT
  Sex: Male
  Weight: 82 kg

DRUGS (6)
  1. ZANTAC [Concomitant]
     Dates: start: 20001227
  2. NEORAL [Suspect]
     Indication: NEPHROTIC SYNDROME
     Dosage: 100 MG/DAY
     Route: 048
     Dates: start: 20001227, end: 20010205
  3. ALDACTONE [Concomitant]
     Dates: start: 20010630
  4. ZYLORIC ^FRESENIUS^ [Concomitant]
     Dates: start: 20010630
  5. SIMVASTATIN [Concomitant]
     Dates: start: 20001227
  6. LASIX [Concomitant]
     Dates: start: 20001227

REACTIONS (2)
  - PULMONARY INFARCTION [None]
  - DYSPNOEA [None]
